FAERS Safety Report 20576063 (Version 1)
Quarter: 2022Q1

REPORT INFORMATION
  Report Type: Spontaneous
  Country: AU (occurrence: AU)
  Receive Date: 20220310
  Receipt Date: 20220310
  Transmission Date: 20220423
  Serious: Yes (Hospitalization)
  Sender: FDA-Public Use
  Company Number: AU-STRIDES ARCOLAB LIMITED-2022SP002312

PATIENT
  Age: 35 Year
  Sex: Female
  Weight: 50 kg

DRUGS (4)
  1. POTASSIUM CHLORIDE [Interacting]
     Active Substance: POTASSIUM CHLORIDE
     Indication: Product used for unknown indication
     Dosage: 18000 MILLIGRAM, TOTAL (SUSTAINED-RELEASE TABLET)
     Route: 048
  2. FERROUS GLUCONATE [Interacting]
     Active Substance: FERROUS GLUCONATE
     Indication: Product used for unknown indication
     Dosage: UNK
     Route: 048
  3. FOLIC ACID [Interacting]
     Active Substance: FOLIC ACID
     Indication: Product used for unknown indication
     Dosage: UNK
     Route: 048
  4. VENLAFAXINE [Interacting]
     Active Substance: VENLAFAXINE HYDROCHLORIDE
     Indication: Product used for unknown indication
     Dosage: 262.5 MILLIGRAM, UNKNOWN
     Route: 048

REACTIONS (4)
  - Drug interaction [Unknown]
  - Alcohol interaction [Unknown]
  - Gastrointestinal disorder [Unknown]
  - Overdose [Unknown]
